FAERS Safety Report 6053498-X (Version None)
Quarter: 2009Q1

REPORT INFORMATION
  Report Type: 
  Country: None (occurrence: None)
  Receive Date: 20090127
  Receipt Date: 20080701
  Transmission Date: 20090719
  Serious: No
  Sender: FDA-Public Use
  Company Number: US-TEVA-172792USA

PATIENT
  Age: 33 Year
  Sex: Male

DRUGS (10)
  1. COPAXONE [Suspect]
     Indication: MULTIPLE SCLEROSIS
     Route: 058
  2. OXCARBAZEPINE [Concomitant]
  3. OBETROL [Concomitant]
  4. BUPROPION HCL [Concomitant]
  5. NICOTINIC ACID [Concomitant]
  6. BACLOFEN [Concomitant]
  7. ALPRAZOLAM [Concomitant]
  8. ESCITALOPRAM OXALATE [Concomitant]
  9. TESTOSTERONE [Concomitant]
  10. TESTOSTERONE [Concomitant]

REACTIONS (1)
  - SECONDARY HYPOGONADISM [None]
